FAERS Safety Report 11502596 (Version 6)
Quarter: 2015Q4

REPORT INFORMATION
  Report Type: Report from Study
  Country: ID (occurrence: ID)
  Receive Date: 20150914
  Receipt Date: 20151130
  Transmission Date: 20160304
  Serious: Yes (Death, Life-Threatening, Other)
  Sender: FDA-Public Use
  Company Number: ID-BAYER-2015-371479

PATIENT
  Age: 76 Year
  Sex: Female

DRUGS (2)
  1. NEXAVAR [Suspect]
     Active Substance: SORAFENIB
     Indication: HEPATOCELLULAR CARCINOMA
     Dosage: DAILY DOSE 400 MG
     Route: 048
     Dates: start: 201503
  2. NEXAVAR [Suspect]
     Active Substance: SORAFENIB
     Indication: HEPATOCELLULAR CARCINOMA
     Dosage: 400 MG, BID
     Route: 048
     Dates: start: 20150529, end: 20151101

REACTIONS (16)
  - Dysphagia [None]
  - Faecal incontinence [None]
  - Abdominal pain [None]
  - Chest pain [None]
  - Rash [None]
  - Muscular weakness [Recovered/Resolved]
  - Alopecia [None]
  - Mobility decreased [None]
  - Aphasia [None]
  - Dyspnoea [None]
  - Decubitus ulcer [None]
  - Therapy cessation [None]
  - Death [Fatal]
  - Ascites [Not Recovered/Not Resolved]
  - Diarrhoea [None]
  - Dysphagia [Recovered/Resolved]

NARRATIVE: CASE EVENT DATE: 20150812
